FAERS Safety Report 9254922 (Version 1)
Quarter: 2013Q1

REPORT INFORMATION
  Report Type: Spontaneous
  Country: US (occurrence: None)
  Receive Date: 20121203
  Receipt Date: 20121203
  Transmission Date: 20140127
  Serious: Yes (Hospitalization)
  Sender: FDA-Public Use
  Company Number: 1210USA000646

PATIENT
  Age: 57 Year
  Sex: Male

DRUGS (2)
  1. JANUVIA (SITAGLIPTIN PHOSPHATE) [Suspect]
     Route: 048
  2. JANUMET (SITAGLIPTIN PHOSPHATE (+) FILM-COATED TABLET [Concomitant]
     Dosage: UNK, QD, ORAL

REACTIONS (1)
  - Pancreatitis [None]
